FAERS Safety Report 9260255 (Version 7)
Quarter: 2020Q1

REPORT INFORMATION
  Report Type: Spontaneous
  Country: GR (occurrence: GR)
  Receive Date: 20130429
  Receipt Date: 20200313
  Transmission Date: 20200409
  Serious: Yes (Hospitalization, Other)
  Sender: FDA-Public Use
  Company Number: GR-AMGEN-GRCSP2013028516

PATIENT
  Age: 72 Year
  Sex: Female
  Weight: 77 kg

DRUGS (7)
  1. PROLIA [Suspect]
     Active Substance: DENOSUMAB
     Indication: OSTEOPOROSIS POSTMENOPAUSAL
     Dosage: 60 MG, Q6MO
     Route: 058
     Dates: start: 20120603, end: 201212
  2. ONE ALPHA [Concomitant]
     Active Substance: ALFACALCIDOL
     Dosage: UNK
  3. CALCIORAL [Concomitant]
     Dosage: UNK
  4. TENORMIN [Concomitant]
     Active Substance: ATENOLOL
     Indication: TACHYCARDIA
     Dosage: 25 MG, UNK, DOSE INCREASED TO 37 MG
  5. CALCIUM [Concomitant]
     Active Substance: CALCIUM
  6. PREVNAR 13 [Suspect]
     Active Substance: PNEUMOCOCCAL 13-VALENT CONJUGATE VACCINE
     Indication: PRODUCT USED FOR UNKNOWN INDICATION
     Route: 065
  7. THYROXINE [Concomitant]
     Active Substance: LEVOTHYROXINE
     Indication: AUTOIMMUNE THYROIDITIS

REACTIONS (44)
  - Injection site pain [Not Recovered/Not Resolved]
  - Depression [Unknown]
  - Skin sensitisation [Unknown]
  - Alopecia [Not Recovered/Not Resolved]
  - Acute myocardial infarction [Not Recovered/Not Resolved]
  - Insomnia [Not Recovered/Not Resolved]
  - Arrhythmia [Not Recovered/Not Resolved]
  - Anxiety [Not Recovered/Not Resolved]
  - Depressed mood [Unknown]
  - Chest pain [Recovered/Resolved]
  - Arthralgia [Not Recovered/Not Resolved]
  - Mental disorder [Unknown]
  - Oedema peripheral [Unknown]
  - Panic attack [Not Recovered/Not Resolved]
  - Bowel movement irregularity [Unknown]
  - Irritability [Not Recovered/Not Resolved]
  - Pain [Unknown]
  - Fibrin D dimer increased [Recovered/Resolved]
  - Decreased appetite [Unknown]
  - Malaise [Unknown]
  - Diarrhoea [Recovered/Resolved]
  - Eosinophil percentage increased [Not Recovered/Not Resolved]
  - Polyp [Unknown]
  - Personality change [Unknown]
  - Oesophagitis [Unknown]
  - Vertigo [Unknown]
  - Atrial fibrillation [Not Recovered/Not Resolved]
  - Epistaxis [Not Recovered/Not Resolved]
  - Eosinophilia [Recovered/Resolved]
  - Oesophageal irritation [Unknown]
  - Sleep disorder [Unknown]
  - Pyrexia [Unknown]
  - Extrasystoles [Unknown]
  - Hypertensive crisis [Recovered/Resolved]
  - Pulmonary embolism [Not Recovered/Not Resolved]
  - Pain in extremity [Recovered/Resolved]
  - Xanthelasma [Recovered/Resolved]
  - Tachycardia [Not Recovered/Not Resolved]
  - Blood pressure increased [Not Recovered/Not Resolved]
  - Oedema [Unknown]
  - Cough [Unknown]
  - Peripheral venous disease [Unknown]
  - Troponin increased [Recovered/Resolved]
  - Fatigue [Unknown]

NARRATIVE: CASE EVENT DATE: 2012
